FAERS Safety Report 5492441-9 (Version None)
Quarter: 2007Q4

REPORT INFORMATION
  Report Type: 
  Country: None (occurrence: None)
  Receive Date: 20071015
  Receipt Date: 20070809
  Transmission Date: 20080405
  Serious: No
  Sender: FDA-Public Use
  Company Number: 2007SP002803

PATIENT
  Age: 79 Year
  Sex: Female
  Weight: 70.3075 kg

DRUGS (14)
  1. LUNESTA [Suspect]
     Indication: INSOMNIA
     Dosage: 2 MG; 1X; ORAL, 1 MG; HS; ORAL
     Route: 048
     Dates: start: 20070807, end: 20070807
  2. LUNESTA [Suspect]
     Indication: INSOMNIA
     Dosage: 2 MG; 1X; ORAL, 1 MG; HS; ORAL
     Route: 048
     Dates: start: 20070808
  3. LEVOTHYROXINE SODIUM [Concomitant]
  4. PREMPRO [Concomitant]
  5. VITAMINS [Concomitant]
  6. WELLBUTRIN [Concomitant]
  7. ASPIRIN [Concomitant]
  8. PAXIL [Concomitant]
  9. AMITRIPTYLINE HCL [Concomitant]
  10. ZANTAC [Concomitant]
  11. NASONEX [Concomitant]
  12. ZYRTEC [Concomitant]
  13. ATORVASTATIN CALCIUM [Concomitant]
  14. AMBIEN [Concomitant]

REACTIONS (2)
  - FATIGUE [None]
  - SOMNOLENCE [None]
